FAERS Safety Report 23844386 (Version 1)
Quarter: 2024Q2

REPORT INFORMATION
  Report Type: Spontaneous
  Country: CA (occurrence: CA)
  Receive Date: 20240510
  Receipt Date: 20240510
  Transmission Date: 20240716
  Serious: Yes (Other)
  Sender: FDA-Public Use
  Company Number: CA-TEVA-VS-3197407

PATIENT
  Age: 74 Year
  Sex: Female

DRUGS (13)
  1. LANSOPRAZOLE [Suspect]
     Active Substance: LANSOPRAZOLE
     Indication: Gastrooesophageal reflux disease
     Dosage: DOSE FORM: DELAYED RELEASE CAPSULES
     Route: 048
  2. COSENTYX [Suspect]
     Active Substance: SECUKINUMAB
     Indication: Psoriatic arthropathy
     Route: 058
  3. COSENTYX [Suspect]
     Active Substance: SECUKINUMAB
     Indication: Psoriatic arthropathy
     Route: 058
  4. COSENTYX [Suspect]
     Active Substance: SECUKINUMAB
     Indication: Psoriatic arthropathy
     Route: 058
  5. COSENTYX [Suspect]
     Active Substance: SECUKINUMAB
     Indication: Psoriatic arthropathy
     Route: 065
  6. DICLOFENAC DIETHYLAMINE [Concomitant]
     Active Substance: DICLOFENAC DIETHYLAMINE
     Indication: Product used for unknown indication
     Route: 061
  7. TYLENOL 8 HR ARTHRITIS PAIN [Concomitant]
     Active Substance: ACETAMINOPHEN
     Indication: Product used for unknown indication
     Route: 048
  8. DILTIAZEM HYDROCHLORIDE [Concomitant]
     Active Substance: DILTIAZEM HYDROCHLORIDE
     Indication: Product used for unknown indication
     Route: 048
  9. NAPROXEN [Concomitant]
     Active Substance: NAPROXEN
     Indication: Product used for unknown indication
     Route: 048
  10. FAMOTIDINE [Concomitant]
     Active Substance: FAMOTIDINE
     Indication: Gastrooesophageal reflux disease
     Route: 048
  11. EZETIMIBE [Concomitant]
     Active Substance: EZETIMIBE
     Indication: Product used for unknown indication
     Route: 048
  12. BETAMETHASONE DIPROPIONATE\CALCIPOTRIENE [Concomitant]
     Active Substance: BETAMETHASONE DIPROPIONATE\CALCIPOTRIENE
     Indication: Psoriatic arthropathy
     Route: 061
  13. ASPIRIN [Concomitant]
     Active Substance: ASPIRIN
     Indication: Product used for unknown indication
     Route: 048

REACTIONS (35)
  - Gastritis erosive [Not Recovered/Not Resolved]
  - Gastrointestinal motility disorder [Not Recovered/Not Resolved]
  - Gastrooesophageal reflux disease [Not Recovered/Not Resolved]
  - Hernia [Not Recovered/Not Resolved]
  - Hiatus hernia [Not Recovered/Not Resolved]
  - Illness [Not Recovered/Not Resolved]
  - Limb discomfort [Not Recovered/Not Resolved]
  - Mass [Not Recovered/Not Resolved]
  - Muscle atrophy [Not Recovered/Not Resolved]
  - Nasopharyngitis [Not Recovered/Not Resolved]
  - Oropharyngeal pain [Not Recovered/Not Resolved]
  - Osteoarthritis [Not Recovered/Not Resolved]
  - Pain [Not Recovered/Not Resolved]
  - Peripheral swelling [Not Recovered/Not Resolved]
  - Polyp [Not Recovered/Not Resolved]
  - Arthritis [Not Recovered/Not Resolved]
  - Asthenia [Not Recovered/Not Resolved]
  - Constipation [Not Recovered/Not Resolved]
  - Diarrhoea [Not Recovered/Not Resolved]
  - Diverticulum [Not Recovered/Not Resolved]
  - Gait disturbance [Not Recovered/Not Resolved]
  - Gastritis [Not Recovered/Not Resolved]
  - Abdominal discomfort [Not Recovered/Not Resolved]
  - Psoriasis [Not Recovered/Not Resolved]
  - Psoriatic arthropathy [Not Recovered/Not Resolved]
  - Rhinorrhoea [Not Recovered/Not Resolved]
  - Skin fissures [Not Recovered/Not Resolved]
  - Skin wrinkling [Not Recovered/Not Resolved]
  - Synovitis [Not Recovered/Not Resolved]
  - Taste disorder [Not Recovered/Not Resolved]
  - Urticaria [Not Recovered/Not Resolved]
  - Weight decreased [Not Recovered/Not Resolved]
  - Inappropriate schedule of product administration [Not Recovered/Not Resolved]
  - Drug intolerance [Not Recovered/Not Resolved]
  - Drug ineffective [Not Recovered/Not Resolved]
